FAERS Safety Report 4989437-X (Version None)
Quarter: 2006Q2

REPORT INFORMATION
  Report Type: 
  Country: None (occurrence: None)
  Receive Date: 20060426
  Receipt Date: 20060413
  Transmission Date: 20061013
  Serious: Yes (Hospitalization)
  Sender: FDA-Public Use
  Company Number: US200603007242

PATIENT
  Age: 83 Year
  Sex: Male
  Weight: 72.6 kg

DRUGS (2)
  1. CYMBALTA [Suspect]
     Indication: DEPRESSION
     Dosage: 60 MG
     Dates: start: 20040101, end: 20040101
  2. DARVON [Concomitant]

REACTIONS (3)
  - CONSTIPATION [None]
  - FAECALOMA [None]
  - URINARY RETENTION [None]
